FAERS Safety Report 21160776 (Version 1)
Quarter: 2022Q3

REPORT INFORMATION
  Report Type: Spontaneous
  Country: US (occurrence: US)
  Receive Date: 20220802
  Receipt Date: 20220802
  Transmission Date: 20221027
  Serious: No
  Sender: FDA-Public Use
  Company Number: US-PUMA BIOTECHNOLOGY, LTD.-2022-PUM-US000509

PATIENT

DRUGS (3)
  1. NERATINIB [Suspect]
     Active Substance: NERATINIB
     Indication: Product used for unknown indication
     Dosage: 120 MG, DAILY
     Route: 048
  2. NERATINIB [Suspect]
     Active Substance: NERATINIB
     Dosage: 160 MG, DAILY
     Route: 048
  3. NERATINIB [Suspect]
     Active Substance: NERATINIB
     Dosage: 200 MG, DAILY
     Route: 048

REACTIONS (6)
  - Diarrhoea [Unknown]
  - Epistaxis [Unknown]
  - Nausea [Unknown]
  - Vomiting [Unknown]
  - Drug titration [Unknown]
  - Drug intolerance [Unknown]
